FAERS Safety Report 9271908 (Version 2)
Quarter: 2013Q3

REPORT INFORMATION
  Report Type: Spontaneous
  Country: CA (occurrence: CA)
  Receive Date: 20130506
  Receipt Date: 20130704
  Transmission Date: 20140515
  Serious: Yes (Hospitalization)
  Sender: FDA-Public Use
  Company Number: CA-AMGEN-CANSP2012067836

PATIENT
  Age: 80 Year
  Sex: Female
  Weight: 51.5 kg

DRUGS (5)
  1. PROLIA [Suspect]
     Indication: OSTEOPOROSIS POSTMENOPAUSAL
     Dosage: 60 MG, Q6MO
     Route: 058
     Dates: start: 20120409
  2. METHOTREXATE [Concomitant]
     Indication: PSORIATIC ARTHROPATHY
     Dosage: UNK UNK, QWK
     Route: 048
     Dates: start: 20100827
  3. BETADERM                           /00008501/ [Concomitant]
     Indication: SKIN LESION
     Dosage: 0.5 %, BID
     Route: 061
     Dates: start: 20101213
  4. PANTOPRAZOLE [Concomitant]
     Dosage: UNK UNK, QOD
     Route: 048
     Dates: start: 2008
  5. ROSUVASTATIN [Concomitant]
     Indication: HYPERCHOLESTEROLAEMIA
     Dosage: 10 MG, UNK
     Route: 048

REACTIONS (2)
  - Hip arthroplasty [Unknown]
  - Pruritus [Not Recovered/Not Resolved]
